FAERS Safety Report 25275159 (Version 1)
Quarter: 2025Q2

REPORT INFORMATION
  Report Type: Spontaneous
  Country: US (occurrence: US)
  Receive Date: 20250506
  Receipt Date: 20250506
  Transmission Date: 20250716
  Serious: Yes (Hospitalization)
  Sender: MYLAN
  Company Number: US-MYLANLABS-2025M1037301

PATIENT
  Age: 43 Year
  Sex: Male

DRUGS (7)
  1. METOLAZONE [Suspect]
     Active Substance: METOLAZONE
     Indication: Acute kidney injury
  2. METOLAZONE [Suspect]
     Active Substance: METOLAZONE
     Indication: Pulmonary hypertension
  3. BUMETANIDE [Suspect]
     Active Substance: BUMETANIDE
     Indication: Acute kidney injury
  4. BUMETANIDE [Suspect]
     Active Substance: BUMETANIDE
     Indication: Pulmonary hypertension
  5. UPTRAVI [Suspect]
     Active Substance: SELEXIPAG
     Indication: Pulmonary hypertension
  6. OPSUMIT [Suspect]
     Active Substance: MACITENTAN
     Indication: Pulmonary hypertension
  7. ADEMPAS [Suspect]
     Active Substance: RIOCIGUAT
     Indication: Pulmonary hypertension

REACTIONS (1)
  - Drug ineffective [Unknown]

NARRATIVE: CASE EVENT DATE: 20190801
